FAERS Safety Report 7009302-6 (Version None)
Quarter: 2010Q3

REPORT INFORMATION
  Report Type: 
  Country: None (occurrence: None)
  Receive Date: 20100923
  Receipt Date: 20100914
  Transmission Date: 20110219
  Serious: Yes (Life-Threatening, Hospitalization, Other)
  Sender: FDA-Public Use
  Company Number: MX-TYCO HEALTHCARE/MALLINCKRODT-T201001981

PATIENT
  Sex: Female

DRUGS (1)
  1. OPTIRAY 350 [Suspect]
     Dosage: 200 ML
     Dates: start: 20100914, end: 20100914

REACTIONS (3)
  - BRONCHOSPASM [None]
  - PULSE ABSENT [None]
  - RASH [None]
